FAERS Safety Report 23957862 (Version 1)
Quarter: 2024Q2

REPORT INFORMATION
  Report Type: Spontaneous
  Country: US (occurrence: US)
  Receive Date: 20240610
  Receipt Date: 20240610
  Transmission Date: 20240716
  Serious: Yes (Hospitalization)
  Sender: FDA-Public Use
  Company Number: US-BRISTOL-MYERS SQUIBB COMPANY-2024-088986

PATIENT
  Age: 88 Year
  Sex: Male

DRUGS (1)
  1. POMALYST [Suspect]
     Active Substance: POMALIDOMIDE
     Indication: Plasma cell myeloma
     Dosage: TAKE 1 CAPSULE BY MOUTH 1 TIME A DAY FOR 10 DAYS ON AND 18 DAYS OFF
     Route: 048
     Dates: start: 202310

REACTIONS (3)
  - Fall [Unknown]
  - Off label use [Unknown]
  - Wound [Unknown]

NARRATIVE: CASE EVENT DATE: 20240401
